FAERS Safety Report 25603721 (Version 1)
Quarter: 2025Q3

REPORT INFORMATION
  Report Type: Spontaneous
  Country: MY (occurrence: MY)
  Receive Date: 20250725
  Receipt Date: 20250725
  Transmission Date: 20251020
  Serious: Yes (Other)
  Sender: SANDOZ
  Company Number: MY-SANDOZ-SDZ2025MY052336

PATIENT
  Age: 58 Year
  Sex: Female

DRUGS (1)
  1. CEFAZOLIN SODIUM [Suspect]
     Active Substance: CEFAZOLIN SODIUM
     Indication: Antibiotic therapy
     Dosage: 2 G, QD
     Route: 042

REACTIONS (1)
  - Anaphylactic shock [Recovered/Resolved]
